FAERS Safety Report 11628867 (Version 3)
Quarter: 2016Q1

REPORT INFORMATION
  Report Type: Spontaneous
  Country: US (occurrence: US)
  Receive Date: 20151014
  Receipt Date: 20160113
  Transmission Date: 20160525
  Serious: Yes (Death, Hospitalization, Other)
  Sender: FDA-Public Use
  Company Number: US-GLAXOSMITHKLINE-US2015GSK145821

PATIENT
  Age: 73 Year
  Sex: Male

DRUGS (12)
  1. REVATIO [Suspect]
     Active Substance: SILDENAFIL CITRATE
     Indication: CHRONIC OBSTRUCTIVE PULMONARY DISEASE
  2. POTASSIUM CHLORIDE. [Suspect]
     Active Substance: POTASSIUM CHLORIDE
     Indication: PRODUCT USED FOR UNKNOWN INDICATION
     Dosage: 20 MEQ, BID
  3. ADVAIR HFA [Suspect]
     Active Substance: FLUTICASONE PROPIONATE\SALMETEROL XINAFOATE
     Indication: CHRONIC OBSTRUCTIVE PULMONARY DISEASE
     Dosage: 1 PUFF(S), BID
     Dates: start: 2012
  4. PRADAXA [Suspect]
     Active Substance: DABIGATRAN ETEXILATE MESYLATE
     Indication: PRODUCT USED FOR UNKNOWN INDICATION
     Dosage: 75 MG, BID
  5. SPIRIVA [Suspect]
     Active Substance: TIOTROPIUM BROMIDE MONOHYDRATE
     Indication: PRODUCT USED FOR UNKNOWN INDICATION
     Dosage: 1 PUFF(S), QD
  6. SYNTHROID [Suspect]
     Active Substance: LEVOTHYROXINE SODIUM
     Indication: PRODUCT USED FOR UNKNOWN INDICATION
     Dosage: 70 ?G, QD
  7. FLONASE [Suspect]
     Active Substance: FLUTICASONE PROPIONATE
     Indication: MULTIPLE ALLERGIES
     Dosage: 2 DF, QD
     Dates: start: 2010
  8. CELEXA [Suspect]
     Active Substance: CITALOPRAM HYDROBROMIDE
     Indication: DEPRESSION
     Dosage: 20 MG, QD
     Dates: start: 2012
  9. REVATIO [Suspect]
     Active Substance: SILDENAFIL CITRATE
     Indication: CARDIOVASCULAR DISORDER
     Dosage: 40 MG, TID
     Dates: start: 201302
  10. REVATIO [Suspect]
     Active Substance: SILDENAFIL CITRATE
     Indication: ASTHENIA
  11. FUROSEMIDE. [Suspect]
     Active Substance: FUROSEMIDE
     Indication: OEDEMA
     Dosage: 40 MG, QD
     Dates: start: 2013
  12. INDAPAMIDE. [Suspect]
     Active Substance: INDAPAMIDE
     Indication: OEDEMA
     Dosage: 1.25 MG, QD
     Dates: start: 2013

REACTIONS (3)
  - Implantable defibrillator insertion [Unknown]
  - Death [Fatal]
  - Cardiovascular disorder [Unknown]

NARRATIVE: CASE EVENT DATE: 2012
